FAERS Safety Report 6902810-5 (Version None)
Quarter: 2010Q3

REPORT INFORMATION
  Report Type: 
  Country: None (occurrence: None)
  Receive Date: 20100803
  Receipt Date: 20080612
  Transmission Date: 20110219
  Serious: Yes (Other)
  Sender: FDA-Public Use
  Company Number: US-PFIZER INC-2008050081

PATIENT
  Sex: Female
  Weight: 90.7 kg

DRUGS (9)
  1. LYRICA [Suspect]
     Indication: FIBROMYALGIA
     Route: 048
     Dates: start: 20080501, end: 20080501
  2. LISINOPRIL [Concomitant]
  3. MELOXICAM [Concomitant]
  4. PAROXETINE HCL [Concomitant]
  5. LOVASTATIN [Concomitant]
  6. LEVOTHYROXINE [Concomitant]
  7. OMEPRAZOLE [Concomitant]
  8. LANTUS [Concomitant]
  9. ACTOS [Concomitant]

REACTIONS (2)
  - VISION BLURRED [None]
  - WEIGHT INCREASED [None]
